FAERS Safety Report 6420512-9 (Version None)
Quarter: 2009Q4

REPORT INFORMATION
  Report Type: 
  Country: None (occurrence: None)
  Receive Date: 20091029
  Receipt Date: 20091023
  Transmission Date: 20100525
  Serious: Yes (Hospitalization, Other)
  Sender: FDA-Public Use
  Company Number: US-GILEAD-2009-0019724

PATIENT
  Sex: Female
  Weight: 86.26 kg

DRUGS (10)
  1. LETAIRIS [Suspect]
     Indication: PULMONARY HYPERTENSION
     Route: 048
     Dates: start: 20080305, end: 20090105
  2. COUMADIN [Concomitant]
  3. LASIX [Concomitant]
  4. PLAVIX [Concomitant]
  5. K-DUR [Concomitant]
  6. ASPIRIN [Concomitant]
  7. ZOCOR [Concomitant]
  8. PRILOSEC [Concomitant]
  9. PAXIL [Concomitant]
  10. VICODIN [Concomitant]

REACTIONS (7)
  - DILATATION VENTRICULAR [None]
  - GASTROINTESTINAL HAEMORRHAGE [None]
  - HAEMORRHAGIC ANAEMIA [None]
  - HEPATIC ENCEPHALOPATHY [None]
  - LIVER FUNCTION TEST ABNORMAL [None]
  - PULMONARY HYPERTENSION [None]
  - RIGHT VENTRICULAR FAILURE [None]
